FAERS Safety Report 6521209-7 (Version None)
Quarter: 2009Q4

REPORT INFORMATION
  Report Type: 
  Country: None (occurrence: None)
  Receive Date: 20091222
  Receipt Date: 20091215
  Transmission Date: 20100525
  Serious: Yes (Death)
  Sender: FDA-Public Use
  Company Number: KV200900833

PATIENT
  Sex: Male

DRUGS (1)
  1. MORPHINE SULFATE [Suspect]
     Indication: DRUG USE FOR UNKNOWN INDICATION
     Dosage: ORAL
     Route: 048

REACTIONS (5)
  - APHASIA [None]
  - ASCITES [None]
  - BONE NEOPLASM MALIGNANT [None]
  - HEPATIC FAILURE [None]
  - MOANING [None]
